FAERS Safety Report 6546054-8 (Version None)
Quarter: 2010Q1

REPORT INFORMATION
  Report Type: 
  Country: None (occurrence: None)
  Receive Date: 20100119
  Receipt Date: 20100104
  Transmission Date: 20100710
  Serious: Yes (Hospitalization)
  Sender: FDA-Public Use
  Company Number: 2009AC000146

PATIENT
  Sex: Female

DRUGS (12)
  1. DIGOXIN [Suspect]
     Dosage: 0.25 MG; PO
     Route: 048
     Dates: start: 20070601, end: 20090501
  2. MAGNESIUM OXIDE [Concomitant]
  3. SPIRONOLACTONE [Concomitant]
  4. *FERROUS GLUCONATE [Concomitant]
  5. LISINOPRIL [Concomitant]
  6. FUROSEMIDE [Concomitant]
  7. COREG [Concomitant]
  8. BIDIL [Concomitant]
  9. CADUET [Concomitant]
  10. HYDROCODONE BITARTRATE AND ACETAMINOPHEN [Concomitant]
  11. ADIPEX-P [Concomitant]
  12. PHENTERMINE [Concomitant]

REACTIONS (7)
  - CARDIAC FAILURE CONGESTIVE [None]
  - COUGH [None]
  - DECREASED APPETITE [None]
  - HYPERTENSION [None]
  - INJURY [None]
  - NIGHT SWEATS [None]
  - PAIN [None]
